FAERS Safety Report 5108873-4 (Version None)
Quarter: 2006Q3

REPORT INFORMATION
  Report Type: 
  Country: None (occurrence: None)
  Receive Date: 20060920
  Receipt Date: 20060908
  Transmission Date: 20061208
  Serious: Yes (Other)
  Sender: FDA-Public Use
  Company Number: PHBS2006JP13845

PATIENT
  Age: 70 Year
  Sex: Female

DRUGS (5)
  1. PARLODEL [Suspect]
     Indication: PARKINSON'S DISEASE
     Dosage: 15 MG/DAY
     Route: 048
     Dates: start: 20050801, end: 20060623
  2. MENESIT [Concomitant]
     Dosage: 300 MG, UNK
     Route: 048
  3. FP [Concomitant]
     Dosage: 5 MG, UNK
     Route: 048
  4. NORVASC [Concomitant]
     Dosage: 5 MG, UNK
     Route: 048
  5. BUP-4 [Concomitant]
     Dosage: 20 MG, UNK
     Route: 048

REACTIONS (2)
  - CHEST X-RAY ABNORMAL [None]
  - INTERSTITIAL LUNG DISEASE [None]
